FAERS Safety Report 23601221 (Version 1)
Quarter: 2024Q1

REPORT INFORMATION
  Report Type: Report from Study
  Country: CN (occurrence: CN)
  Receive Date: 20240306
  Receipt Date: 20240306
  Transmission Date: 20240409
  Serious: Yes (Other)
  Sender: FDA-Public Use
  Company Number: CN-PFIZER INC-202400055721

PATIENT
  Age: 35 Year
  Sex: Female

DRUGS (1)
  1. MISOPROSTOL [Suspect]
     Active Substance: MISOPROSTOL
     Dosage: UNK
     Route: 048

REACTIONS (5)
  - Anaphylactic shock [Recovered/Resolved]
  - Chest discomfort [Recovered/Resolved]
  - Vomiting [Recovered/Resolved]
  - Chills [Recovered/Resolved]
  - Hypoaesthesia [Recovered/Resolved]
